FAERS Safety Report 8265232-3 (Version None)
Quarter: 2012Q2

REPORT INFORMATION
  Report Type: 
  Country: None (occurrence: None)
  Receive Date: 20120406
  Receipt Date: 20120323
  Transmission Date: 20120825
  Serious: Yes (Other)
  Sender: FDA-Public Use
  Company Number: CA-ROCHE-1054132

PATIENT
  Sex: Female

DRUGS (1)
  1. OMALIZUMAB [Suspect]
     Indication: ASTHMA
     Route: 058
     Dates: start: 20100310

REACTIONS (6)
  - SINUSITIS [None]
  - MALAISE [None]
  - BLOOD PRESSURE INCREASED [None]
  - CONTUSION [None]
  - NASOPHARYNGITIS [None]
  - FATIGUE [None]
